FAERS Safety Report 7574272-9 (Version None)
Quarter: 2011Q2

REPORT INFORMATION
  Report Type: 
  Country: None (occurrence: None)
  Receive Date: 20110627
  Receipt Date: 20110523
  Transmission Date: 20111010
  Serious: Yes (Other)
  Sender: FDA-Public Use
  Company Number: US-BAYER-201038958NA

PATIENT
  Age: 32 Year
  Sex: Female

DRUGS (7)
  1. RANITIDINE [Concomitant]
     Dosage: 150 MG, BID
     Route: 048
     Dates: start: 20061109
  2. YASMIN [Suspect]
     Dosage: UNK
     Dates: start: 20011001, end: 20080101
  3. MEPROZINE [Concomitant]
     Indication: NAUSEA
  4. YAZ [Suspect]
     Indication: PRODUCT USED FOR UNKNOWN INDICATION
     Dosage: UNK
     Dates: start: 20030101, end: 20060101
  5. YASMIN [Suspect]
     Dosage: UNK
     Dates: start: 20030101, end: 20060101
  6. MEPROZINE [Concomitant]
     Indication: PAIN
     Dosage: 50/25 MG EVERY 6 HOURS AS NEEDED
     Route: 048
     Dates: start: 20061009
  7. SYNTHROID [Concomitant]
     Indication: HYPOTHYROIDISM
     Dosage: UNK
     Dates: start: 20020101

REACTIONS (3)
  - GALLBLADDER NON-FUNCTIONING [None]
  - PAIN [None]
  - CHOLECYSTITIS [None]
